FAERS Safety Report 6867718-2 (Version None)
Quarter: 2010Q3

REPORT INFORMATION
  Report Type: 
  Country: None (occurrence: None)
  Receive Date: 20100722
  Receipt Date: 20100715
  Transmission Date: 20110219
  Serious: Yes (Life-Threatening, Hospitalization)
  Sender: FDA-Public Use
  Company Number: US-PURDUE-USA-2010-0042212

PATIENT
  Sex: Female
  Weight: 54 kg

DRUGS (7)
  1. MORPHINE SULFATE [Suspect]
     Indication: PAIN
     Dosage: UNK
     Dates: start: 20090401, end: 20090401
  2. REBIF [Suspect]
     Indication: MULTIPLE SCLEROSIS
     Dosage: 44 MCG, SEE TEXT
     Route: 058
     Dates: start: 20060731
  3. REBIF [Suspect]
     Dosage: 44 MCG, SEE TEXT
     Route: 058
     Dates: start: 20100102
  4. MICARDIS HCT [Concomitant]
     Indication: HYPERTENSION
     Dosage: 20 MG, DAILY
     Dates: start: 20000101
  5. LEVOTHROID [Concomitant]
     Indication: HYPOTHYROIDISM
     Dosage: 100 MCG, UNK
     Dates: start: 20000101
  6. OXYCODONE AND ACETAMINOPHEN [Concomitant]
     Indication: PAIN
     Dosage: 5 MG, PRN
     Dates: start: 20000101
  7. OXYCODONE AND ACETAMINOPHEN [Concomitant]
     Indication: BACK PAIN

REACTIONS (3)
  - ACCIDENTAL OVERDOSE [None]
  - CLOSTRIDIAL INFECTION [None]
  - DEPRESSED LEVEL OF CONSCIOUSNESS [None]
